FAERS Safety Report 9825360 (Version 1)
Quarter: 2014Q1

REPORT INFORMATION
  Report Type: Spontaneous
  Country: US (occurrence: None)
  Receive Date: 20140115
  Receipt Date: 20140115
  Transmission Date: 20141002
  Serious: Yes (Hospitalization)
  Sender: FDA-Public Use
  Company Number: None

PATIENT
  Age: 52 Year
  Sex: Male
  Weight: 65 kg

DRUGS (18)
  1. PRIMIDONE [Suspect]
     Indication: TREMOR
     Dosage: PRIOR TO ADMISSION
     Route: 048
  2. ALBUTEROL NEBULIZER [Concomitant]
  3. ALBUTEROL INHALER [Concomitant]
  4. ALLOPURINOL [Concomitant]
  5. ASCORBIC ACID [Concomitant]
  6. ATORVASTATIN [Concomitant]
  7. BACLOFEN [Concomitant]
  8. BECLOMETHASONE INHALER [Concomitant]
  9. CYCLOBENZAPRINE [Concomitant]
  10. DIVALPROEX [Concomitant]
  11. HYDROCODONE/APAP [Concomitant]
  12. LAMOTRIGINE [Concomitant]
  13. LORAZEPAM [Concomitant]
  14. MORPHINE SR [Concomitant]
  15. OMEPRAZOLE [Concomitant]
  16. PREGABALIN [Concomitant]
  17. TRAZODONE [Concomitant]
  18. VERAPAMIL SR [Concomitant]

REACTIONS (5)
  - Drug interaction [None]
  - Mental status changes [None]
  - Respiratory depression [None]
  - Drug clearance decreased [None]
  - Pneumonia aspiration [None]
